FAERS Safety Report 25774709 (Version 1)
Quarter: 2025Q3

REPORT INFORMATION
  Report Type: Spontaneous
  Country: TR (occurrence: TR)
  Receive Date: 20250908
  Receipt Date: 20250908
  Transmission Date: 20251021
  Serious: Yes (Other)
  Sender: OTSUKA
  Company Number: TR-MMM-Otsuka-0GOF1TBZ

PATIENT
  Age: 30 Year
  Sex: Female

DRUGS (4)
  1. TOLVAPTAN [Suspect]
     Active Substance: TOLVAPTAN
     Indication: Congenital cystic kidney disease
     Dosage: 15 MG, QD (AT NOON)
     Route: 048
     Dates: start: 202506, end: 2025
  2. TOLVAPTAN [Suspect]
     Active Substance: TOLVAPTAN
     Dosage: 30 MG, QD (AT NIGHT)
     Route: 048
     Dates: start: 202506, end: 2025
  3. IRDAPIN [Concomitant]
     Indication: Hypertension
     Dosage: 300 MG, QD
     Route: 048
  4. CARDURA [Concomitant]
     Active Substance: DOXAZOSIN MESYLATE
     Indication: Hypertension
     Dosage: 4 MG, QD
     Route: 048

REACTIONS (6)
  - Hypertension [Not Recovered/Not Resolved]
  - Ocular icterus [Recovered/Resolved]
  - Fluid intake reduced [Recovered/Resolved]
  - Sleep disorder [Recovered/Resolved]
  - Asthenia [Recovered/Resolved]
  - Underdose [Unknown]

NARRATIVE: CASE EVENT DATE: 20250101
